FAERS Safety Report 17516013 (Version 1)
Quarter: 2020Q1

REPORT INFORMATION
  Report Type: Spontaneous
  Country: IE (occurrence: IE)
  Receive Date: 20200309
  Receipt Date: 20200309
  Transmission Date: 20200409
  Serious: Yes (Other)
  Sender: FDA-Public Use
  Company Number: IE-PFIZER INC-2020096894

PATIENT
  Age: 82 Year
  Sex: Male

DRUGS (8)
  1. LEVOMEPROMAZINE [Concomitant]
     Active Substance: LEVOMEPROMAZINE
     Dosage: UNK
  2. MST [MORPHINE SULFATE] [Suspect]
     Active Substance: MORPHINE SULFATE
     Dosage: 5 MG, UNK
     Route: 065
     Dates: start: 201811
  3. ORAMORPH SR SUSTAINED RELEASE [Suspect]
     Active Substance: MORPHINE SULFATE
     Dosage: 2 MG, AS NEEDED TWICE A DAY (BD)
     Route: 065
     Dates: start: 201811
  4. ESBRIET [Suspect]
     Active Substance: PIRFENIDONE
     Indication: IDIOPATHIC PULMONARY FIBROSIS
     Dosage: UNK (X 4 MONTHS ; TIME INTERVAL: 0.33 D)
     Route: 048
     Dates: start: 201811
  5. MIDAZOLAM HYDROCHLORIDE. [Concomitant]
     Active Substance: MIDAZOLAM HYDROCHLORIDE
     Dosage: UNK
  6. ALPRAZOLAM. [Suspect]
     Active Substance: ALPRAZOLAM
     Dosage: 0.25 MG, AS NEEDED
     Route: 065
  7. NINTEDANIB [Suspect]
     Active Substance: NINTEDANIB
     Dosage: 150 MG, UNK
     Route: 065
  8. OXYCODONE [Concomitant]
     Active Substance: OXYCODONE
     Dosage: UNK

REACTIONS (13)
  - Frustration tolerance decreased [Unknown]
  - Off label use [Unknown]
  - Decreased appetite [Unknown]
  - Dyspnoea at rest [Unknown]
  - Delirium [Unknown]
  - Fatigue [Unknown]
  - Constipation [Unknown]
  - Anxiety [Unknown]
  - Depressed mood [Unknown]
  - Pyrexia [Unknown]
  - Cough [Unknown]
  - Chest pain [Unknown]
  - Dyspnoea exertional [Unknown]

NARRATIVE: CASE EVENT DATE: 201811
